FAERS Safety Report 4539819-5 (Version None)
Quarter: 2004Q4

REPORT INFORMATION
  Report Type: 
  Country: None (occurrence: None)
  Receive Date: 20041222
  Receipt Date: 20041202
  Transmission Date: 20050328
  Serious: Yes (Hospitalization)
  Sender: FDA-Public Use
  Company Number: US_0412108763

PATIENT
  Age: 1 Day
  Sex: Male
  Weight: 4 kg

DRUGS (4)
  1. HUMULIN 70/30 [Suspect]
     Dates: start: 20030601, end: 20030601
  2. HUMULIN N [Suspect]
     Dates: end: 20040630
  3. NOVOLIN 70/30 [Concomitant]
  4. PRENATAL VITAMINS [Concomitant]

REACTIONS (3)
  - BLOOD GLUCOSE DECREASED [None]
  - DRUG EXPOSURE DURING PREGNANCY [None]
  - NEONATAL DISORDER [None]
